FAERS Safety Report 7301460-9 (Version None)
Quarter: 2011Q1

REPORT INFORMATION
  Report Type: 
  Country: None (occurrence: None)
  Receive Date: 20110113
  Receipt Date: 20101123
  Transmission Date: 20110831
  Serious: No
  Sender: FDA-Public Use
  Company Number: PR-001423

PATIENT
  Sex: Male
  Weight: 91 kg

DRUGS (2)
  1. KUVAN (SAPROPERTIN DIHYDROCHLORIDE) (100 MG, 100 MG) [Suspect]
     Indication: PHENYLKETONURIA
     Dosage: 1400 MG QD ORAL, 1400 MG QD ORAL
     Route: 048
     Dates: start: 20090808, end: 20100501
  2. KUVAN (SAPROPERTIN DIHYDROCHLORIDE) (100 MG, 100 MG) [Suspect]
     Indication: PHENYLKETONURIA
     Dosage: 1400 MG QD ORAL, 1400 MG QD ORAL
     Route: 048
     Dates: start: 20101101

REACTIONS (1)
  - ABDOMINAL DISCOMFORT [None]
